FAERS Safety Report 9954294 (Version 1)
Quarter: 2014Q1

REPORT INFORMATION
  Report Type: Report from Study
  Country: US (occurrence: US)
  Receive Date: 20140304
  Receipt Date: 20140304
  Transmission Date: 20141002
  Serious: No
  Sender: FDA-Public Use
  Company Number: US-ABBVIE-13P-163-1076041-00

PATIENT
  Age: 20 Year
  Sex: Female

DRUGS (6)
  1. HUMIRA [Suspect]
     Indication: PSORIASIS
  2. HUMIRA [Suspect]
  3. XANAX [Concomitant]
     Indication: PANIC DISORDER
  4. XANAX [Concomitant]
     Indication: PANIC ATTACK
     Dosage: AS NEEDED
  5. PROZAC [Concomitant]
     Indication: DEPRESSION
  6. PROZAC [Concomitant]
     Indication: ANXIETY

REACTIONS (1)
  - Psoriasis [Not Recovered/Not Resolved]
